FAERS Safety Report 4353641-4 (Version None)
Quarter: 2004Q2

REPORT INFORMATION
  Report Type: 
  Country: None (occurrence: None)
  Receive Date: 20040430
  Receipt Date: 20040421
  Transmission Date: 20050107
  Serious: Yes (Hospitalization, Other)
  Sender: FDA-Public Use
  Company Number: CIP04000510

PATIENT
  Age: 77 Year
  Sex: Female

DRUGS (9)
  1. DIDRONEL [Suspect]
     Indication: OSTEOPOROSIS
     Dosage: 400 MG DAILY, ORAL
     Route: 048
     Dates: start: 20040107, end: 20040121
  2. PREDNISOLONE [Concomitant]
  3. URSO [Concomitant]
  4. MUCOSTA (REBAMIPIDE) [Concomitant]
  5. OMEPRAZOLE [Concomitant]
  6. GLAKAY (MENATETRENONE) [Concomitant]
  7. ONE-ALPHA (ALFACALCIDOL) [Concomitant]
  8. AMOBAN (ZOPICLONE) [Concomitant]
  9. MYTELASE [Concomitant]

REACTIONS (1)
  - MYASTHENIA GRAVIS [None]
